FAERS Safety Report 23797185 (Version 4)
Quarter: 2025Q4

REPORT INFORMATION
  Report Type: Report from Study
  Country: US (occurrence: None)
  Receive Date: 20240430
  Receipt Date: 20251016
  Transmission Date: 20260118
  Serious: Yes (Hospitalization, Other)
  Sender: UCB
  Company Number: US-UCBSA-2023046909

PATIENT
  Age: 31 Year
  Weight: 79 kg

DRUGS (20)
  1. CERTOLIZUMAB PEGOL [Suspect]
     Active Substance: CERTOLIZUMAB PEGOL
     Indication: Psoriatic arthropathy
     Dosage: 400 MILLIGRAM, WEEKLY (QW)
  2. CERTOLIZUMAB PEGOL [Suspect]
     Active Substance: CERTOLIZUMAB PEGOL
     Indication: Psoriasis
     Dosage: 200 MILLIGRAM, EV 2 WEEKS(QOW)
  3. CAFFEINE [Concomitant]
     Active Substance: CAFFEINE
     Indication: Product used for unknown indication
     Dosage: 8 OZ SODA (5 TOTAL)
  4. CALCIUM [Concomitant]
     Active Substance: CALCIUM
     Indication: Nutritional supplementation
     Dosage: 1 PILL 1 DAY
  5. CALCIUM\MAGNESIUM [Concomitant]
     Active Substance: CALCIUM\MAGNESIUM
     Indication: Nutritional supplementation
     Dosage: 2 PILLS  1 DAY
  6. FLU VACCINE NOS [Concomitant]
     Indication: Product used for unknown indication
     Dosage: 1 SHOT 1 DAY
  7. IRON [Concomitant]
     Active Substance: IRON
     Indication: Product used for unknown indication
     Dosage: 45 MILLIGRAM, ONCE DAILY (QD)
  8. METOCLOPRAMI DE [Concomitant]
     Indication: Gastrointestinal disorder
     Dosage: 10 MILLIGRAM, 1.5 A DAY
  9. MODERNA COVID-19 VACCINE [Concomitant]
     Active Substance: ELASOMERAN
     Indication: Product used for unknown indication
     Dosage: 1 SHOT (DOSE 3+)
  10. OMEPRAZOLE [Concomitant]
     Active Substance: OMEPRAZOLE
     Indication: Gastrointestinal disorder
     Dosage: 20 MILLIGRAM, ONCE DAILY (QD)
  11. PREDNISONE [Concomitant]
     Active Substance: PREDNISONE
     Indication: Psoriatic arthropathy
     Dosage: 5 MILLIGRAM, ONCE DAILY (QD)
  12. PREDNISONE [Concomitant]
     Active Substance: PREDNISONE
     Indication: Psoriasis
  13. PRENATAL VITAMIN NOS [Concomitant]
     Indication: Product used for unknown indication
     Dosage: 1 PILL 1 DAY
  14. SIMETHICONE (DIMETHICONE) [Concomitant]
     Active Substance: DIMETHICONE
     Indication: Product used for unknown indication
     Dosage: 125 MILLIGRAM GAS, ONCE DAILY (QD)
  15. DIPHTHERIA AND TETANUS TOXOIDS AND PERTUSSIS VACCINE [Concomitant]
     Active Substance: DIPHTHERIA AND TETANUS TOXOIDS AND PERTUSSIS VACCINE
     Indication: Product used for unknown indication
     Dosage: 1 SHOT PER DAY
  16. DIPHTHERIA AND TETANUS TOXOIDS AND PERTUSSIS VACCINE [Concomitant]
     Active Substance: DIPHTHERIA AND TETANUS TOXOIDS AND PERTUSSIS VACCINE
     Dosage: 1 SHOT PER DAY
  17. TUMS [Concomitant]
     Active Substance: CALCIUM CARBONATE
     Indication: Dyspepsia
     Dosage: 2 PILL MONTHLY
  18. TUMS [Concomitant]
     Active Substance: CALCIUM CARBONATE
     Dosage: 3 PILL 1 DAY
  19. VITAMIN D [Concomitant]
     Active Substance: VITAMIN D NOS
     Indication: Nutritional supplementation
     Dosage: 4000 INTERNATIONAL UNIT, WEEKLY (QW)
  20. VITAMIN D [Concomitant]
     Active Substance: VITAMIN D NOS
     Dosage: 2000 INTERNATIONAL UNIT, 5X/WEEK

REACTIONS (11)
  - Amniotic cavity infection [Not Recovered/Not Resolved]
  - Sepsis [Unknown]
  - Caesarean section [Unknown]
  - Premature rupture of membranes [Unknown]
  - Labour induction [Unknown]
  - Injection site pain [Not Recovered/Not Resolved]
  - Postoperative wound infection [Recovered/Resolved]
  - Maternal exposure during pregnancy [Unknown]
  - Device difficult to use [Unknown]
  - Product quality issue [Unknown]
  - Inappropriate schedule of product administration [Unknown]
